FAERS Safety Report 24025188 (Version 2)
Quarter: 2024Q3

REPORT INFORMATION
  Report Type: Report from Study
  Country: KR (occurrence: KR)
  Receive Date: 20240628
  Receipt Date: 20240710
  Transmission Date: 20241016
  Serious: No
  Sender: ROCHE
  Company Number: KR-ROCHE-3349009

PATIENT
  Age: 70 Year

DRUGS (2)
  1. ALECTINIB [Suspect]
     Active Substance: ALECTINIB
     Indication: Pancreatic carcinoma
     Dosage: RECEIVED LAST DOSE ON 15/MAY/2023
     Route: 048
     Dates: start: 20230417, end: 20230515
  2. ALECTINIB [Suspect]
     Active Substance: ALECTINIB
     Route: 048
     Dates: start: 20230522

REACTIONS (3)
  - Nausea [Recovering/Resolving]
  - Blood creatine increased [Recovered/Resolved]
  - Blood potassium increased [Recovering/Resolving]

NARRATIVE: CASE EVENT DATE: 20230426
